FAERS Safety Report 9556351 (Version 1)
Quarter: 2013Q3

REPORT INFORMATION
  Report Type: Spontaneous
  Country: GB (occurrence: None)
  Receive Date: 20130924
  Receipt Date: 20130924
  Transmission Date: 20140515
  Serious: Yes (Other)
  Sender: FDA-Public Use
  Company Number: GER/UKI/13/0034565

PATIENT
  Sex: Female

DRUGS (9)
  1. FEXOFENADINE [Suspect]
     Indication: HYPERSENSITIVITY
     Route: 048
     Dates: start: 20031103
  2. SPIRIVA [Suspect]
     Indication: CHRONIC OBSTRUCTIVE PULMONARY DISEASE
     Route: 055
     Dates: start: 20031217
  3. PAROXETINE HYDROCHLORIDE (PAROXETINE HYDROCHLORIDE) [Concomitant]
  4. PROPRANOLOL (PROPRANOLOL) [Concomitant]
  5. RIZATRIPTAN (RIZATRIPTAN) [Concomitant]
  6. SEEREVENT (SALMETEROL XINAFOATE) [Concomitant]
  7. SYMBICORT [Concomitant]
  8. TERBUTALINE (TERBUTALINE) [Concomitant]
  9. TRAMADOL (TRAMADOL HYDROCHLORIDE) [Concomitant]

REACTIONS (7)
  - Dystonia [None]
  - Extrapyramidal disorder [None]
  - Gastrooesophageal reflux disease [None]
  - Functional gastrointestinal disorder [None]
  - Gastrointestinal inflammation [None]
  - Muscle spasms [None]
  - Oesophageal spasm [None]
